FAERS Safety Report 9639158 (Version 1)
Quarter: 2013Q4

REPORT INFORMATION
  Report Type: Spontaneous
  Country: US (occurrence: None)
  Receive Date: 20131021
  Receipt Date: 20131021
  Transmission Date: 20140711
  Serious: No
  Sender: FDA-Public Use
  Company Number: RB-58507-2013

PATIENT
  Sex: Male

DRUGS (2)
  1. GUAIFENESIN W/DEXTROMETHORPHAN [Suspect]
     Indication: PRODUCT USED FOR UNKNOWN INDICATION
     Dosage: 1200 MG 1X, TOOK ONE TABLET ON 01-OCT-2013.  LAST USED PRODUCT ON 01-OCT-2013 ORAL
     Route: 048
     Dates: start: 20131001
  2. MUCINEX [Suspect]
     Indication: PRODUCT USED FOR UNKNOWN INDICATION
     Dosage: 20 ML 1X, TOOK 1 DOSE ON 01/OCT/2013.  LAST USED PRODUCT ON 01/OCT/2013. ORAL
     Route: 048
     Dates: start: 20131001

REACTIONS (3)
  - Dizziness [None]
  - Loss of consciousness [None]
  - Diarrhoea [None]
